FAERS Safety Report 4333955-4 (Version None)
Quarter: 2004Q2

REPORT INFORMATION
  Report Type: 
  Country: None (occurrence: None)
  Receive Date: 20040406
  Receipt Date: 20040406
  Transmission Date: 20050107
  Serious: Yes (Death)
  Sender: FDA-Public Use
  Company Number: None

PATIENT
  Age: 60 Year
  Sex: Male
  Weight: 71 kg

DRUGS (1)
  1. THALIDOMIDE 50 MG TABS/CELGENE [Suspect]
     Dosage: 200 MG PO QHS
     Route: 048
     Dates: start: 20030917, end: 20040321

REACTIONS (3)
  - BLOOD PRESSURE DECREASED [None]
  - CARDIAC ARREST [None]
  - SUDDEN DEATH [None]
